FAERS Safety Report 9279188 (Version 1)
Quarter: 2013Q2

REPORT INFORMATION
  Report Type: Spontaneous
  Country: IT (occurrence: IT)
  Receive Date: 20130508
  Receipt Date: 20130508
  Transmission Date: 20140414
  Serious: Yes (Life-Threatening)
  Sender: FDA-Public Use
  Company Number: IT-TEVA-402171ISR

PATIENT
  Age: 34 Year
  Sex: Female

DRUGS (4)
  1. CABERGOLINE [Suspect]
     Indication: SUPPRESSED LACTATION
     Dosage: 1MG
     Route: 048
  2. KETOROLAC [Suspect]
     Indication: HEADACHE
     Route: 048
  3. BUDESONIDE [Concomitant]
     Indication: ASTHMA
     Dosage: 1600 MICROGRAM DAILY;
     Route: 055
  4. FORMOTEROL [Concomitant]
     Indication: ASTHMA
     Dosage: 48 MICROGRAM DAILY;
     Route: 065

REACTIONS (2)
  - Kounis syndrome [Recovering/Resolving]
  - Exposure during breast feeding [Unknown]
